FAERS Safety Report 17676291 (Version 1)
Quarter: 2020Q2

REPORT INFORMATION
  Report Type: Spontaneous
  Country: US (occurrence: US)
  Receive Date: 20200415
  Receipt Date: 20200415
  Transmission Date: 20200714
  Serious: No
  Sender: FDA-Public Use
  Company Number: None

PATIENT
  Age: 70 Year
  Sex: Male

DRUGS (1)
  1. BUPROPION (BUPROPION HCL 300MG 24 HR TAB, SA) [Suspect]
     Active Substance: BUPROPION HYDROCHLORIDE
     Indication: DEPRESSION
     Route: 048
     Dates: start: 20200115, end: 20200415

REACTIONS (1)
  - Bruxism [None]

NARRATIVE: CASE EVENT DATE: 20200415
